FAERS Safety Report 15888931 (Version 1)
Quarter: 2019Q1

REPORT INFORMATION
  Report Type: Spontaneous
  Country: US (occurrence: US)
  Receive Date: 20190130
  Receipt Date: 20190130
  Transmission Date: 20190417
  Serious: Yes (Other)
  Sender: FDA-Public Use
  Company Number: US-UPSHER-SMITH LABORATORIES, LLC-2019USL00036

PATIENT

DRUGS (1)
  1. VIGADRONE [Suspect]
     Active Substance: VIGABATRIN

REACTIONS (2)
  - Product dose omission [Unknown]
  - Seizure [Unknown]

NARRATIVE: CASE EVENT DATE: 20190111
